FAERS Safety Report 8328815-8 (Version None)
Quarter: 2012Q2

REPORT INFORMATION
  Report Type: 
  Country: None (occurrence: None)
  Receive Date: 20120502
  Receipt Date: 20100915
  Transmission Date: 20120825
  Serious: No
  Sender: FDA-Public Use
  Company Number: US-TEVA-2010004735

PATIENT
  Sex: Male
  Weight: 72.64 kg

DRUGS (1)
  1. NUVIGIL [Suspect]
     Indication: DEPRESSED LEVEL OF CONSCIOUSNESS
     Dosage: 150 MILLIGRAM;
     Route: 048
     Dates: start: 20100720, end: 20100725

REACTIONS (1)
  - BRUXISM [None]
